FAERS Safety Report 6760895-3 (Version None)
Quarter: 2010Q2

REPORT INFORMATION
  Report Type: 
  Country: None (occurrence: None)
  Receive Date: 20100607
  Receipt Date: 20100607
  Transmission Date: 20101027
  Serious: Yes (Life-Threatening, Other)
  Sender: FDA-Public Use
  Company Number: None

PATIENT
  Sex: Male
  Weight: 68.4932 kg

DRUGS (2)
  1. LEVAQUIN [Suspect]
     Indication: BRONCHITIS
     Dosage: 1 A DAY- 7 DAYS
     Dates: start: 20100519, end: 20100525
  2. LEVAQUIN [Suspect]
     Indication: SINUSITIS
     Dosage: 1 A DAY- 7 DAYS
     Dates: start: 20100519, end: 20100525

REACTIONS (3)
  - INSOMNIA [None]
  - MUSCULAR WEAKNESS [None]
  - TENDON RUPTURE [None]
